FAERS Safety Report 5893054-7 (Version None)
Quarter: 2008Q3

REPORT INFORMATION
  Report Type: 
  Country: None (occurrence: None)
  Receive Date: 20080923
  Receipt Date: 20080211
  Transmission Date: 20090109
  Serious: No
  Sender: FDA-Public Use
  Company Number: US-ASTRAZENECA-2006UW24098

PATIENT
  Age: 14481 Day
  Sex: Male
  Weight: 75.9 kg

DRUGS (14)
  1. SEROQUEL [Suspect]
     Indication: BIPOLAR DISORDER
     Route: 048
     Dates: start: 20000101, end: 20070101
  2. SEROQUEL [Suspect]
     Indication: DEPRESSION
     Route: 048
     Dates: start: 20000101, end: 20070101
  3. SEROQUEL [Suspect]
     Indication: SCHIZOAFFECTIVE DISORDER
     Route: 048
     Dates: start: 20000101, end: 20070101
  4. SEROQUEL [Suspect]
     Route: 048
     Dates: start: 20001101, end: 20010601
  5. SEROQUEL [Suspect]
     Route: 048
     Dates: start: 20001101, end: 20010601
  6. SEROQUEL [Suspect]
     Route: 048
     Dates: start: 20001101, end: 20010601
  7. SEROQUEL [Suspect]
     Route: 048
     Dates: start: 20070105
  8. SEROQUEL [Suspect]
     Route: 048
     Dates: start: 20070105
  9. SEROQUEL [Suspect]
     Route: 048
     Dates: start: 20070105
  10. ABILIFY [Concomitant]
     Dates: start: 20060601
  11. GEODON [Concomitant]
     Dates: start: 20060601, end: 20070101
  12. THORAZINE [Concomitant]
     Dates: start: 20060601
  13. ZYPREXA [Concomitant]
     Dates: start: 20010101, end: 20010701
  14. KLONOPIN [Concomitant]
     Dates: start: 19970101

REACTIONS (3)
  - BLOOD CHOLESTEROL INCREASED [None]
  - DIABETES MELLITUS [None]
  - OBESITY [None]
